APPROVED DRUG PRODUCT: DOFETILIDE
Active Ingredient: DOFETILIDE
Strength: 0.25MG
Dosage Form/Route: CAPSULE;ORAL
Application: A213220 | Product #002 | TE Code: AB
Applicant: MSN LABORATORIES PRIVATE LTD
Approved: Jan 29, 2020 | RLD: No | RS: No | Type: RX